FAERS Safety Report 4389512-7 (Version None)
Quarter: 2004Q3

REPORT INFORMATION
  Report Type: 
  Country: None (occurrence: None)
  Receive Date: 20040702
  Receipt Date: 20040621
  Transmission Date: 20050211
  Serious: Yes (Other)
  Sender: FDA-Public Use
  Company Number: JP-GLAXOSMITHKLINE-B0336494A

PATIENT
  Age: 84 Year
  Sex: Female

DRUGS (5)
  1. PAXIL [Suspect]
     Indication: DEPRESSION
     Dosage: 20MG PER DAY
     Route: 048
     Dates: start: 20030108, end: 20031204
  2. MEILAX [Concomitant]
     Dosage: 2MG PER DAY
     Route: 048
  3. PERDIPINE [Concomitant]
     Dosage: 60MG PER DAY
     Route: 048
  4. COMELIAN [Concomitant]
     Dosage: 150MG PER DAY
     Route: 048
  5. GANATON [Concomitant]
     Dosage: 150MG PER DAY
     Route: 048

REACTIONS (1)
  - PARKINSONISM [None]
